FAERS Safety Report 4893739-5 (Version None)
Quarter: 2006Q1

REPORT INFORMATION
  Report Type: 
  Country: None (occurrence: None)
  Receive Date: 20060127
  Receipt Date: 20060126
  Transmission Date: 20060701
  Serious: Yes (Hospitalization)
  Sender: FDA-Public Use
  Company Number: FRPFM-P-20060014-V001

PATIENT
  Age: 34 Month
  Sex: Male

DRUGS (1)
  1. CIBLOR [Suspect]
     Indication: BRONCHITIS
     Dosage: 1U THREE TIMES PER DAY
     Route: 048
     Dates: start: 20051228, end: 20060102

REACTIONS (3)
  - JAUNDICE [None]
  - PYREXIA [None]
  - RASH [None]
